FAERS Safety Report 21907875 (Version 1)
Quarter: 2023Q1

REPORT INFORMATION
  Report Type: Spontaneous
  Country: US (occurrence: US)
  Receive Date: 20230125
  Receipt Date: 20230125
  Transmission Date: 20230418
  Serious: No
  Sender: FDA-Public Use
  Company Number: US-BoehringerIngelheim-2023-BI-214570

PATIENT
  Age: 63 Year
  Sex: Female

DRUGS (2)
  1. GILOTRIF [Suspect]
     Active Substance: AFATINIB
     Indication: Brain neoplasm malignant
     Dates: start: 202212
  2. GILOTRIF [Suspect]
     Active Substance: AFATINIB
     Dates: start: 202212

REACTIONS (2)
  - Diarrhoea [Recovered/Resolved]
  - Intentional product use issue [Unknown]

NARRATIVE: CASE EVENT DATE: 20221201
